FAERS Safety Report 21391099 (Version 1)
Quarter: 2022Q3

REPORT INFORMATION
  Report Type: Spontaneous
  Country: US (occurrence: None)
  Receive Date: 20220928
  Receipt Date: 20220928
  Transmission Date: 20221027
  Serious: Yes (Life-Threatening)
  Sender: FDA-Public Use
  Company Number: None

PATIENT
  Age: 68 Year
  Sex: Male

DRUGS (1)
  1. LISINOPRIL [Suspect]
     Active Substance: LISINOPRIL
     Indication: Hypertension
     Dosage: 1O MG EVERY DAY PO?
     Route: 048
     Dates: start: 20210225, end: 20220815

REACTIONS (1)
  - Angioedema [None]

NARRATIVE: CASE EVENT DATE: 20220815
